FAERS Safety Report 13617858 (Version 1)
Quarter: 2017Q2

REPORT INFORMATION
  Report Type: Spontaneous
  Country: US (occurrence: US)
  Receive Date: 20170606
  Receipt Date: 20170606
  Transmission Date: 20170830
  Serious: No
  Sender: FDA-Public Use
  Company Number: US-TARO-2016TAR01050

PATIENT
  Age: 6 Month
  Sex: Female
  Weight: 8.62 kg

DRUGS (2)
  1. FEVERALL [Suspect]
     Active Substance: ACETAMINOPHEN
     Dosage: 160 MG, 4X/DAY AS NEEDED
     Route: 054
     Dates: start: 20161222, end: 20161223
  2. FEVERALL [Suspect]
     Active Substance: ACETAMINOPHEN
     Indication: PYREXIA
     Dosage: 80 MG, TWICE
     Route: 054
     Dates: start: 20161221, end: 20161221

REACTIONS (2)
  - Prescribed overdose [Recovered/Resolved]
  - Drug ineffective [Recovered/Resolved]

NARRATIVE: CASE EVENT DATE: 20161220
